FAERS Safety Report 5928388-0 (Version None)
Quarter: 2008Q4

REPORT INFORMATION
  Report Type: 
  Country: None (occurrence: None)
  Receive Date: 20081023
  Receipt Date: 20081016
  Transmission Date: 20090506
  Serious: Yes (Hospitalization, Disabling)
  Sender: FDA-Public Use
  Company Number: FR-ASTRAZENECA-2008CG01514

PATIENT
  Age: 686 Month
  Sex: Female

DRUGS (8)
  1. TENORMIN [Suspect]
     Route: 048
     Dates: start: 20050501
  2. VIDEX [Suspect]
     Route: 048
     Dates: start: 20060101
  3. COMBIVIR [Suspect]
     Dosage: 150 + 300 MG TWICE DAILY
     Route: 048
     Dates: start: 20060101
  4. FLUDEX [Suspect]
     Route: 048
     Dates: start: 20080201
  5. NEXIUM [Concomitant]
     Route: 048
  6. COVERSYL [Concomitant]
     Route: 048
  7. LIPANTHYL [Concomitant]
     Route: 048
     Dates: start: 20080201
  8. NEURONTIN [Concomitant]
     Route: 048
     Dates: start: 20061201

REACTIONS (1)
  - INSULIN-REQUIRING TYPE 2 DIABETES MELLITUS [None]
